FAERS Safety Report 7201339-7 (Version None)
Quarter: 2010Q4

REPORT INFORMATION
  Report Type: 
  Country: None (occurrence: None)
  Receive Date: 20101229
  Receipt Date: 20101215
  Transmission Date: 20110411
  Serious: Yes (Other)
  Sender: FDA-Public Use
  Company Number: TR-RANBAXY-2010RR-40592

PATIENT
  Age: 33 Year
  Sex: Female

DRUGS (3)
  1. FLUOXETINE [Suspect]
     Indication: DEPRESSION
     Dosage: 20 MG, UNK
  2. FLUOXETINE [Suspect]
     Dosage: 40 MG, UNK
  3. FLUOXETINE [Suspect]
     Dosage: 20 MG, UNK

REACTIONS (5)
  - BONE METABOLISM DISORDER [None]
  - HUMERUS FRACTURE [None]
  - RADIUS FRACTURE [None]
  - SPINAL FRACTURE [None]
  - ULNA FRACTURE [None]
